FAERS Safety Report 8771093 (Version 2)
Quarter: 2012Q4

REPORT INFORMATION
  Report Type: 
  Country: DE (occurrence: DE)
  Receive Date: 20120906
  Receipt Date: 20121003
  Transmission Date: 20130627
  Serious: Yes (Hospitalization)
  Sender: FDA-Public Use
  Company Number: DE-AMGEN-DEUSP2012054756

PATIENT
  Age: 50 Year
  Sex: Female
  Weight: 78 kg

DRUGS (6)
  1. NEULASTA [Suspect]
     Indication: NEUTROPENIA
     Dosage: 6 mg, UNK
     Route: 058
     Dates: start: 20100714
  2. DOCETAXEL [Concomitant]
     Indication: BREAST CANCER
     Dosage: 190 mg, UNK
     Route: 042
     Dates: start: 20100713, end: 20100713
  3. L-THYROXIN [Concomitant]
     Dosage: 50 mg, UNK
     Route: 048
  4. GLUCOSE [Concomitant]
     Dosage: 500 ml, UNK
     Route: 042
     Dates: start: 20100715, end: 20100720
  5. HERBAL EXTRACT NOS [Concomitant]
     Dosage: UNK
  6. CORTICOSTEROID NOS [Concomitant]
     Dosage: UNK
     Dates: start: 20100719, end: 20100720

REACTIONS (1)
  - Back pain [Recovered/Resolved]
